FAERS Safety Report 25373039 (Version 1)
Quarter: 2025Q2

REPORT INFORMATION
  Report Type: Spontaneous
  Country: PT (occurrence: PT)
  Receive Date: 20250529
  Receipt Date: 20250529
  Transmission Date: 20250717
  Serious: Yes (Hospitalization, Other)
  Sender: AUROBINDO
  Company Number: PT-SERB-2025022296

PATIENT
  Age: 6 Decade
  Sex: Male

DRUGS (5)
  1. FLUOXETINE [Suspect]
     Active Substance: FLUOXETINE HYDROCHLORIDE
     Indication: Depression
     Route: 065
  2. PRIMIDONE [Suspect]
     Active Substance: PRIMIDONE
     Indication: Essential tremor
     Dosage: 125 MILLIGRAM, ONCE A DAY INCREASING THE DOSE TO 187.5 MG/D 2 WEEKS LATER
     Route: 065
  3. PRIMIDONE [Suspect]
     Active Substance: PRIMIDONE
     Dosage: 187.5 MILLIGRAM, ONCE A DAY
     Route: 065
  4. PROPRANOLOL [Concomitant]
     Active Substance: PROPRANOLOL HYDROCHLORIDE
     Indication: Essential tremor
     Dosage: 40 MILLIGRAM, ONCE A DAY
     Route: 065
  5. ROSUVASTATIN [Concomitant]
     Active Substance: ROSUVASTATIN
     Indication: Dyslipidaemia
     Dosage: 10 MILLIGRAM, ONCE A DAY
     Route: 065

REACTIONS (3)
  - Bipolar I disorder [Recovering/Resolving]
  - Product use in unapproved indication [Unknown]
  - Drug effective for unapproved indication [Unknown]
